FAERS Safety Report 6099222-6 (Version None)
Quarter: 2009Q1

REPORT INFORMATION
  Report Type: 
  Country: None (occurrence: None)
  Receive Date: 20090225
  Receipt Date: 20090225
  Transmission Date: 20090719
  Serious: Yes (Hospitalization, Other)
  Sender: FDA-Public Use
  Company Number: None

PATIENT
  Sex: Female
  Weight: 68.0396 kg

DRUGS (1)
  1. LYRICA [Suspect]
     Indication: FIBROMYALGIA
     Dosage: 500 MGS 2X DAY PO
     Route: 048
     Dates: start: 20071215, end: 20080315

REACTIONS (3)
  - CEREBROVASCULAR ACCIDENT [None]
  - IMPAIRED DRIVING ABILITY [None]
  - VERTIGO [None]
